FAERS Safety Report 8194194 (Version 5)
Quarter: 2015Q2

REPORT INFORMATION
  Report Type: Report from Study
  Country: TH (occurrence: TH)
  Receive Date: 20111021
  Receipt Date: 20150404
  Transmission Date: 20150821
  Serious: Yes (Hospitalization)
  Sender: FDA-Public Use
  Company Number: TH-ROCHE-1003513

PATIENT
  Age: 44 Year
  Sex: Female
  Weight: 66.5 kg

DRUGS (15)
  1. CYCLOPHOSPHAMIDE. [Suspect]
     Active Substance: CYCLOPHOSPHAMIDE
     Indication: B-CELL LYMPHOMA
     Dosage: LAST DOS EPRIOR TO SAE: 22/SEP/2011
     Route: 042
     Dates: start: 20110922
  2. PARACETAMOL [Concomitant]
     Active Substance: ACETAMINOPHEN
     Route: 065
     Dates: start: 20110922, end: 20110922
  3. BENADRYL (THAILAND) [Concomitant]
     Route: 065
     Dates: start: 20110922, end: 20110922
  4. RITUXIMAB [Suspect]
     Active Substance: RITUXIMAB
     Indication: B-CELL LYMPHOMA
     Dosage: 1.2825 MG/ML, DATE OF MOST RECENT DOSE OF RITUXIMAB PRIOR TO SAE: 22/SEP/2011
     Route: 042
     Dates: start: 20110922
  5. DOXORUBICIN [Suspect]
     Active Substance: DOXORUBICIN
     Indication: B-CELL LYMPHOMA
     Dosage: LAST DOSE PRIOR TO SAE: 22/SEP/2011
     Route: 042
     Dates: start: 20110922
  6. PREDNISONE. [Suspect]
     Active Substance: PREDNISONE
     Indication: B-CELL LYMPHOMA
     Dosage: LAST DOSE PRIOR TO SAE: 22/SEP/2011
     Route: 048
     Dates: start: 20110922
  7. SENOKOT [Concomitant]
     Active Substance: SENNOSIDES
     Route: 065
     Dates: start: 20110929, end: 20110929
  8. ASA [Concomitant]
     Active Substance: ASPIRIN
     Route: 065
     Dates: end: 20110929
  9. DEXAMETHASONE. [Concomitant]
     Active Substance: DEXAMETHASONE
     Route: 065
     Dates: start: 20110922, end: 20110922
  10. VINCRISTINE [Suspect]
     Active Substance: VINCRISTINE
     Indication: B-CELL LYMPHOMA
     Dosage: LAST DOSE PRIOR TO SAE: 22/SEP/2011
     Route: 042
     Dates: start: 20110922
  11. ENARIL [Concomitant]
     Route: 065
     Dates: end: 20120402
  12. ONSIA [Concomitant]
     Route: 065
     Dates: start: 20110922, end: 20110922
  13. GLIPIZIDE. [Concomitant]
     Active Substance: GLIPIZIDE
  14. PLASIL [Concomitant]
     Active Substance: METOCLOPRAMIDE HYDROCHLORIDE
     Route: 065
     Dates: start: 20110922, end: 20110928
  15. BUSCOPAN [Concomitant]
     Active Substance: BUTYLSCOPOLAMINE BROMIDE
     Route: 065
     Dates: start: 20110929, end: 20110929

REACTIONS (1)
  - Upper gastrointestinal haemorrhage [Recovered/Resolved]

NARRATIVE: CASE EVENT DATE: 20110929
